FAERS Safety Report 4334177-3 (Version None)
Quarter: 2004Q2

REPORT INFORMATION
  Report Type: 
  Country: None (occurrence: None)
  Receive Date: 20040402
  Receipt Date: 20040324
  Transmission Date: 20050107
  Serious: Yes (Hospitalization)
  Sender: FDA-Public Use
  Company Number: STA-AE-04-MTX-123

PATIENT
  Age: 56 Year
  Sex: Female

DRUGS (6)
  1. METHOTREXATE [Suspect]
     Indication: ANKYLOSING SPONDYLITIS
     Dosage: 12.5 MG 1 X PER 1 WK , ORAL
     Route: 048
     Dates: end: 20040121
  2. ENBREL [Suspect]
     Indication: ANKYLOSING SPONDYLITIS
     Dosage: 25 MG 2X PER 1 WK, SC
     Route: 058
     Dates: start: 20031001, end: 20031030
  3. SPECIALFOLDINE (FOLIC ACID) [Concomitant]
  4. INDOMETHACIN [Concomitant]
  5. SECTRAL [Concomitant]
  6. SEROPRAM (CITALOPRAM HYDROBROMIDE) [Concomitant]

REACTIONS (1)
  - MENINGITIS MENINGOCOCCAL [None]
